FAERS Safety Report 5321450-5 (Version None)
Quarter: 2007Q2

REPORT INFORMATION
  Report Type: 
  Country: None (occurrence: None)
  Receive Date: 20070510
  Receipt Date: 20070427
  Transmission Date: 20071010
  Serious: Yes (Hospitalization)
  Sender: FDA-Public Use
  Company Number: B0406221A

PATIENT
  Age: 59 Year
  Sex: Male

DRUGS (2)
  1. ZEFIX [Suspect]
     Indication: HEPATIC CIRRHOSIS
     Dosage: 100MG PER DAY
     Route: 048
     Dates: start: 20010405
  2. ADEFOVIR DIPIVOXIL KIT [Suspect]
     Indication: HEPATIC CIRRHOSIS
     Dosage: 10MG PER DAY
     Route: 048
     Dates: start: 20050104

REACTIONS (3)
  - ABDOMINAL DISTENSION [None]
  - ASCITES [None]
  - OESOPHAGEAL VARICES HAEMORRHAGE [None]
